FAERS Safety Report 4506514-8 (Version None)
Quarter: 2004Q4

REPORT INFORMATION
  Report Type: 
  Country: None (occurrence: None)
  Receive Date: 20041122
  Receipt Date: 20041110
  Transmission Date: 20050328
  Serious: Yes (Hospitalization)
  Sender: FDA-Public Use
  Company Number: ES-ABBOTT-04P-144-0280216-00

PATIENT
  Age: 58 Year
  Sex: Female

DRUGS (2)
  1. GOPTEN [Suspect]
     Indication: HYPERTENSION
     Route: 048
     Dates: start: 20040223, end: 20040226
  2. GOPTEN [Suspect]
     Route: 048
     Dates: start: 20040218, end: 20040223

REACTIONS (1)
  - RENAL FAILURE CHRONIC [None]
